FAERS Safety Report 17454587 (Version 1)
Quarter: 2020Q1

REPORT INFORMATION
  Report Type: Spontaneous
  Country: US (occurrence: US)
  Receive Date: 20200225
  Receipt Date: 20200225
  Transmission Date: 20200409
  Serious: Yes (Hospitalization)
  Sender: FDA-Public Use
  Company Number: US-SPECGX-T202000438

PATIENT
  Sex: Male

DRUGS (3)
  1. LENVIMA [Suspect]
     Active Substance: LENVATINIB
     Indication: HEPATOCELLULAR CARCINOMA
     Dosage: 12 MILLIGRAM, QD
     Route: 048
     Dates: start: 20200113, end: 20200123
  2. OXYCODONE [Suspect]
     Active Substance: OXYCODONE
     Indication: PAIN
     Dosage: UNK
     Route: 065
     Dates: end: 202001
  3. LENVIMA [Suspect]
     Active Substance: LENVATINIB
     Dosage: 12 MILLIGRAM, QD
     Route: 048
     Dates: start: 20200127

REACTIONS (5)
  - Gait disturbance [Recovering/Resolving]
  - Fatigue [Recovering/Resolving]
  - Gastrooesophageal reflux disease [Not Recovered/Not Resolved]
  - Decreased appetite [Recovering/Resolving]
  - Hallucination [Recovered/Resolved]
